FAERS Safety Report 9271500 (Version 2)
Quarter: 2013Q2

REPORT INFORMATION
  Report Type: Spontaneous
  Country: JP (occurrence: JP)
  Receive Date: 20130506
  Receipt Date: 20130521
  Transmission Date: 20140414
  Serious: Yes (Hospitalization)
  Sender: FDA-Public Use
  Company Number: JP-JNJFOC-20130415369

PATIENT
  Age: 70 Year
  Sex: Male

DRUGS (8)
  1. XARELTO [Suspect]
     Indication: ATRIAL FIBRILLATION
     Route: 048
     Dates: start: 20130222, end: 20130411
  2. XARELTO [Suspect]
     Indication: EMBOLIC STROKE
     Route: 048
     Dates: start: 20130222, end: 20130411
  3. POTASSIUM SODIUM HYDROGEN CITRATE [Concomitant]
     Route: 048
     Dates: start: 20130222
  4. TAMSULOSIN HYDROCHLORIDE [Concomitant]
     Route: 048
     Dates: start: 20130222
  5. ALLOZYM [Concomitant]
     Route: 048
     Dates: start: 20130222
  6. CETIRIZINE HYDROCHLORIDE [Concomitant]
     Route: 048
     Dates: start: 20130222
  7. FAMOTIDINE [Concomitant]
     Route: 048
     Dates: start: 20130302, end: 20130411
  8. GASPORT [Concomitant]
     Route: 048
     Dates: start: 20130223, end: 20130301

REACTIONS (2)
  - Embolic stroke [Recovered/Resolved]
  - Drug ineffective [Unknown]
